FAERS Safety Report 14361858 (Version 1)
Quarter: 2018Q1

REPORT INFORMATION
  Report Type: Report from Study
  Country: None (occurrence: US)
  Receive Date: 20180108
  Receipt Date: 20180108
  Transmission Date: 20180509
  Serious: Yes (Hospitalization, Other)
  Sender: FDA-Public Use
  Company Number: US-ABBVIE-17K-163-1902227-00

PATIENT
  Age: 56 Year
  Sex: Male

DRUGS (2)
  1. HUMIRA [Suspect]
     Active Substance: ADALIMUMAB
     Indication: CROHN^S DISEASE
     Route: 058
  2. HUMIRA [Suspect]
     Active Substance: ADALIMUMAB
     Route: 058

REACTIONS (11)
  - Frequent bowel movements [Unknown]
  - Crohn^s disease [Recovered/Resolved]
  - Dehydration [Unknown]
  - Intestinal resection [Unknown]
  - Muscle spasms [Unknown]
  - Gastrointestinal viral infection [Unknown]
  - Nausea [Unknown]
  - Hepatic enzyme increased [Unknown]
  - Defaecation urgency [Unknown]
  - Hypophagia [Unknown]
  - Defaecation urgency [Recovered/Resolved]

NARRATIVE: CASE EVENT DATE: 201511
